FAERS Safety Report 10006478 (Version 1)
Quarter: 2014Q1

REPORT INFORMATION
  Report Type: Spontaneous
  Country: DK (occurrence: DE)
  Receive Date: 20140313
  Receipt Date: 20140313
  Transmission Date: 20141002
  Serious: Yes (Congenital Anomaly)
  Sender: FDA-Public Use
  Company Number: DE-FRI-1000064605

PATIENT
  Age: 0 Day
  Sex: Female
  Weight: 3.16 kg

DRUGS (4)
  1. ESCITALOPRAM [Suspect]
     Dosage: 10 MG
     Route: 064
  2. AMISULPRID [Suspect]
     Dosage: 50 MG
     Route: 064
     Dates: start: 20090722, end: 20100427
  3. MUTAGRIP [Concomitant]
     Route: 064
     Dates: start: 20090910, end: 20090910
  4. OMEP [Concomitant]
     Dosage: ONLY A FEW DAYS IN THIRD TRIMESTER
     Route: 064

REACTIONS (3)
  - Congenital aural fistula [Not Recovered/Not Resolved]
  - Haemangioma [Not Recovered/Not Resolved]
  - Foetal exposure during pregnancy [Not Recovered/Not Resolved]
